FAERS Safety Report 8815583 (Version 1)
Quarter: 2012Q4

REPORT INFORMATION
  Report Type: 
  Country: AU (occurrence: AU)
  Receive Date: 20120928
  Receipt Date: 20120928
  Transmission Date: 20130627
  Serious: Yes (Hospitalization, Other)
  Sender: FDA-Public Use
  Company Number: AU-PURDUE-USA-2012-0093597

PATIENT
  Sex: Female

DRUGS (2)
  1. OXYCONTIN TABLETS [Suspect]
     Indication: BACK PAIN
     Route: 048
  2. PANADEINE /00116401/ [Suspect]
     Indication: BACK PAIN
     Route: 048

REACTIONS (11)
  - Drug dependence [Unknown]
  - Intentional drug misuse [Unknown]
  - Renal impairment [Unknown]
  - Amnesia [Unknown]
  - Nerve injury [Unknown]
  - Fall [Unknown]
  - Injury [Unknown]
  - Feeling abnormal [Unknown]
  - Mental impairment [Unknown]
  - General physical health deterioration [Unknown]
  - Drug dependence [None]
